FAERS Safety Report 8440458-4 (Version None)
Quarter: 2012Q2

REPORT INFORMATION
  Report Type: 
  Country: None (occurrence: None)
  Receive Date: 20120615
  Receipt Date: 20120612
  Transmission Date: 20120825
  Serious: Yes (Other)
  Sender: FDA-Public Use
  Company Number: CA-GLAXOSMITHKLINE-A0979395A

PATIENT
  Sex: Female
  Weight: 81 kg

DRUGS (3)
  1. ADVAIR DISKUS 100/50 [Suspect]
     Indication: ASTHMA
     Dosage: 2PUFF TWICE PER DAY
     Route: 055
     Dates: start: 20100601
  2. VENTOLIN [Concomitant]
     Route: 065
  3. COUGH MEDICATION [Concomitant]

REACTIONS (7)
  - NASOPHARYNGITIS [None]
  - HEADACHE [None]
  - DRUG INEFFECTIVE [None]
  - COUGH [None]
  - ASTHMA [None]
  - PRODUCT QUALITY ISSUE [None]
  - DYSGEUSIA [None]
